FAERS Safety Report 12756079 (Version 2)
Quarter: 2017Q3

REPORT INFORMATION
  Report Type: Spontaneous
  Country: US (occurrence: US)
  Receive Date: 20160916
  Receipt Date: 20170920
  Transmission Date: 20171127
  Serious: No
  Sender: FDA-Public Use
  Company Number: US-BAUSCH-BL-2016-014501

PATIENT
  Age: 41 Year
  Sex: Male

DRUGS (1)
  1. TROPICAMIDE OPHTHALMIC SOLUTION USP 0.5% [Suspect]
     Active Substance: TROPICAMIDE
     Indication: MYDRIASIS
     Route: 031
     Dates: start: 20160613, end: 20160613

REACTIONS (3)
  - Condition aggravated [Unknown]
  - Product quality issue [Unknown]
  - Mydriasis [Unknown]

NARRATIVE: CASE EVENT DATE: 20160613
